FAERS Safety Report 7594451-4 (Version None)
Quarter: 2011Q3

REPORT INFORMATION
  Report Type: 
  Country: None (occurrence: None)
  Receive Date: 20110707
  Receipt Date: 20110707
  Transmission Date: 20111222
  Serious: Yes (Hospitalization)
  Sender: FDA-Public Use
  Company Number: None

PATIENT
  Age: 64 Year
  Sex: Male
  Weight: 83.914 kg

DRUGS (12)
  1. METFORMIN HCL [Interacting]
     Route: 048
     Dates: start: 20110429, end: 20110429
  2. BACTRIM DS [Interacting]
     Route: 048
     Dates: start: 20110506, end: 20110506
  3. METHOTREXATE [Interacting]
     Route: 037
     Dates: start: 20110429
  4. HYDROCORTISONE [Interacting]
     Dates: start: 20110429
  5. KYTRIL [Interacting]
     Route: 048
     Dates: start: 20110329, end: 20110329
  6. GLIPIZIDE [Interacting]
     Route: 048
     Dates: start: 20110628, end: 20110628
  7. CYTOXAN [Concomitant]
     Dosage: 1478MG
     Route: 041
  8. BENADRYL [Interacting]
     Route: 048
     Dates: start: 20110329, end: 20110329
  9. PEPCID [Interacting]
     Route: 048
     Dates: start: 20110329, end: 20110329
  10. ADRIAMYCIN PFS [Suspect]
     Indication: NON-HODGKIN'S LYMPHOMA
     Dosage: 99MG
     Route: 042
     Dates: start: 20110329, end: 20110613
  11. TYLENOL-500 [Interacting]
     Route: 048
     Dates: start: 20110506, end: 20110506
  12. ACYCLOVIR [Interacting]
     Route: 048
     Dates: start: 20110429, end: 20110707

REACTIONS (9)
  - HEADACHE [None]
  - ABDOMINAL PAIN [None]
  - ESCHERICHIA INFECTION [None]
  - HYPOTENSION [None]
  - DYSURIA [None]
  - PYREXIA [None]
  - NEUTROPENIA [None]
  - BLOOD CULTURE POSITIVE [None]
  - CHILLS [None]
